FAERS Safety Report 15155530 (Version 2)
Quarter: 2018Q3

REPORT INFORMATION
  Report Type: Spontaneous
  Country: LB (occurrence: LB)
  Receive Date: 20180717
  Receipt Date: 20180725
  Transmission Date: 20181010
  Serious: Yes (Life-Threatening, Other)
  Sender: FDA-Public Use
  Company Number: LB-SA-2018SA181432

PATIENT
  Age: 71 Year
  Sex: Female

DRUGS (4)
  1. ELOXATIN [Suspect]
     Active Substance: OXALIPLATIN
     Indication: COLORECTAL CANCER
     Dosage: 100 MG
     Route: 042
     Dates: start: 20180323, end: 20180323
  2. AVASTIN [Concomitant]
     Active Substance: BEVACIZUMAB
     Dosage: 500 UNK
     Route: 042
     Dates: start: 20180627, end: 20180627
  3. AVASTIN [Concomitant]
     Active Substance: BEVACIZUMAB
     Dosage: 500 MG
     Route: 042
     Dates: start: 20180323, end: 20180323
  4. ELOXATIN [Suspect]
     Active Substance: OXALIPLATIN
     Dosage: 100 UNK
     Route: 042
     Dates: start: 20180627, end: 20180627

REACTIONS (4)
  - Hot flush [Recovered/Resolved]
  - Erythema [Recovered/Resolved]
  - Hypoxia [Recovered/Resolved]
  - Dyspnoea [Recovered/Resolved]

NARRATIVE: CASE EVENT DATE: 20180627
